FAERS Safety Report 5967550-8 (Version None)
Quarter: 2008Q4

REPORT INFORMATION
  Report Type: 
  Country: None (occurrence: None)
  Receive Date: 20081125
  Receipt Date: 20081114
  Transmission Date: 20090506
  Serious: Yes (Hospitalization)
  Sender: FDA-Public Use
  Company Number: US-PFIZER INC-2008097547

PATIENT
  Sex: Male
  Weight: 51.818 kg

DRUGS (2)
  1. ZOLOFT [Suspect]
     Indication: DYSTHYMIC DISORDER
     Dates: start: 20080901
  2. ALL OTHER THERAPEUTIC PRODUCTS [Concomitant]

REACTIONS (3)
  - AGITATION [None]
  - MYDRIASIS [None]
  - OPPOSITIONAL DEFIANT DISORDER [None]
